FAERS Safety Report 7489981-X (Version None)
Quarter: 2011Q2

REPORT INFORMATION
  Report Type: 
  Country: None (occurrence: None)
  Receive Date: 20110519
  Receipt Date: 20110506
  Transmission Date: 20111010
  Serious: No
  Sender: FDA-Public Use
  Company Number: US-JNJFOC-20110505037

PATIENT
  Sex: Female

DRUGS (2)
  1. FENTANYL [Suspect]
     Indication: OSTEOARTHRITIS
     Route: 062
     Dates: start: 20110301
  2. HYDROCODONE [Concomitant]
     Indication: BREAKTHROUGH PAIN
     Route: 065

REACTIONS (6)
  - PRODUCT QUALITY ISSUE [None]
  - DERMATITIS CONTACT [None]
  - MUSCLE TWITCHING [None]
  - EUPHORIC MOOD [None]
  - WITHDRAWAL SYNDROME [None]
  - WRONG TECHNIQUE IN DRUG USAGE PROCESS [None]
